FAERS Safety Report 9413660 (Version 1)
Quarter: 2013Q3

REPORT INFORMATION
  Report Type: Spontaneous
  Country: US (occurrence: US)
  Receive Date: 20130722
  Receipt Date: 20130722
  Transmission Date: 20140515
  Serious: Yes (Other)
  Sender: FDA-Public Use
  Company Number: US-RB-056281-13

PATIENT
  Age: 39 Year
  Sex: Male

DRUGS (1)
  1. BUPRENORPHINE/NALOXONE UNSPECIFIED [Suspect]
     Indication: DRUG DEPENDENCE
     Route: 060
     Dates: start: 2013, end: 2013

REACTIONS (5)
  - Hypersensitivity [Recovered/Resolved]
  - Pallor [Recovered/Resolved]
  - Cyanosis [Recovered/Resolved]
  - Heart rate increased [Recovered/Resolved]
  - Malaise [Recovered/Resolved]
